FAERS Safety Report 17062835 (Version 1)
Quarter: 2019Q4

REPORT INFORMATION
  Report Type: Spontaneous
  Country: GB (occurrence: GB)
  Receive Date: 20191122
  Receipt Date: 20191122
  Transmission Date: 20200122
  Serious: Yes (Hospitalization, Other)
  Sender: FDA-Public Use
  Company Number: GB-TEVA-2019-GB-1139680

PATIENT
  Age: 96 Year
  Sex: Female
  Weight: 55 kg

DRUGS (10)
  1. LORAZEPAM. [Concomitant]
     Active Substance: LORAZEPAM
     Dosage: AT 5PM, 0.5MG/ DAY
  2. FERROUS FUMARATE [Concomitant]
     Active Substance: FERROUS FUMARATE
     Dosage: 2 DF/ DAY
  3. DIPROBASE [Concomitant]
     Active Substance: CHLOROCRESOL
  4. MEMANTINE. [Concomitant]
     Active Substance: MEMANTINE
     Dosage: IN MORNING, 20MG/ DAY
  5. APIXABAN [Concomitant]
     Active Substance: APIXABAN
     Dosage: 5MG/ DAY
  6. CALCICHEW D3 [Concomitant]
     Active Substance: CALCIUM\CHOLECALCIFEROL
     Dosage: 2 DF/ DAY
  7. NITROFURANTOIN. [Suspect]
     Active Substance: NITROFURANTOIN
     Indication: URINARY TRACT INFECTION
     Dosage: 200MG/ DAY, 6 DAYS MODIFIED RELEASE
     Route: 048
     Dates: start: 20180719, end: 20180725
  8. TRIMETHOPRIM. [Concomitant]
     Active Substance: TRIMETHOPRIM
     Indication: URINARY TRACT INFECTION
  9. CASSIA [Concomitant]
  10. CITALOPRAM [Concomitant]
     Active Substance: CITALOPRAM HYDROBROMIDE
     Dosage: 10MG/ DAY

REACTIONS (3)
  - Drug ineffective [Recovering/Resolving]
  - Acute kidney injury [Unknown]
  - Contraindicated product administered [Unknown]

NARRATIVE: CASE EVENT DATE: 20180725
